FAERS Safety Report 4824464-4 (Version None)
Quarter: 2005Q4

REPORT INFORMATION
  Report Type: 
  Country: None (occurrence: None)
  Receive Date: 20051108
  Receipt Date: 20051027
  Transmission Date: 20060501
  Serious: Yes (Hospitalization, Other)
  Sender: FDA-Public Use
  Company Number: JP_051007812

PATIENT
  Age: 53 Year
  Sex: Male
  Weight: 63 kg

DRUGS (7)
  1. ZYPREXA [Suspect]
     Indication: SCHIZOPHRENIA
     Dosage: 10 MG DAY
     Dates: start: 20050826, end: 20051008
  2. RISPERDAL [Concomitant]
  3. BARNETIL (SULTOPRIDE) [Concomitant]
  4. ROHYPNOL (FLUNITRAZEPAM) [Concomitant]
  5. LEVOTOMIN (LEVOMEPROMAZINE MALEATE) [Concomitant]
  6. PURSENNID [Concomitant]
  7. AKINETON   /00079502/(BIPERIDEN HYDROCHLORIDE) [Concomitant]

REACTIONS (6)
  - DIALYSIS [None]
  - HYPONATRAEMIA [None]
  - LOSS OF CONSCIOUSNESS [None]
  - POLYDIPSIA [None]
  - RHABDOMYOLYSIS [None]
  - WATER INTOXICATION [None]
